FAERS Safety Report 6701284-7 (Version None)
Quarter: 2010Q2

REPORT INFORMATION
  Report Type: 
  Country: None (occurrence: None)
  Receive Date: 20100427
  Receipt Date: 20100324
  Transmission Date: 20101027
  Serious: Yes (Hospitalization)
  Sender: FDA-Public Use
  Company Number: 2010-1243

PATIENT
  Age: 68 Year
  Sex: Female

DRUGS (1)
  1. APO-GO AMPOULES (APO-GO) (APOMORPHINE HYDROCHLORIDE) (APOMORPHINE HYDR [Suspect]
     Indication: DRUG USE FOR UNKNOWN INDICATION
     Dosage: 14 HOURS A DAY, SUBCUTANEOUS
     Route: 058
     Dates: start: 20100302

REACTIONS (2)
  - DIARRHOEA [None]
  - NAUSEA [None]
